FAERS Safety Report 15583201 (Version 1)
Quarter: 2018Q4

REPORT INFORMATION
  Report Type: Spontaneous
  Country: US (occurrence: US)
  Receive Date: 20181105
  Receipt Date: 20181105
  Transmission Date: 20190205
  Serious: Yes (Hospitalization)
  Sender: FDA-Public Use
  Company Number: US-HLSUS-2018-US-000966

PATIENT
  Sex: Male

DRUGS (1)
  1. CLOZARIL [Suspect]
     Active Substance: CLOZAPINE
     Dosage: 250MG HS
     Route: 048

REACTIONS (5)
  - Urinary tract infection [Unknown]
  - Fall [Unknown]
  - Ankle fracture [Unknown]
  - Sepsis [Unknown]
  - Diabetes mellitus [Unknown]
